FAERS Safety Report 25534688 (Version 1)
Quarter: 2025Q3

REPORT INFORMATION
  Report Type: Spontaneous
  Country: CA (occurrence: CA)
  Receive Date: 20250709
  Receipt Date: 20250709
  Transmission Date: 20251020
  Serious: Yes (Other)
  Sender: SANDOZ
  Company Number: CA-002147023-NVSC2025CA105619

PATIENT
  Age: 53 Year
  Sex: Male

DRUGS (38)
  1. ACETAMINOPHEN [Suspect]
     Active Substance: ACETAMINOPHEN
     Indication: Migraine
     Route: 048
  2. ALMOTRIPTAN [Suspect]
     Active Substance: ALMOTRIPTAN
     Indication: Product used for unknown indication
     Route: 065
  3. ADVIL [Suspect]
     Active Substance: IBUPROFEN
     Indication: Product used for unknown indication
     Route: 065
  4. AMITRIPTYLINE [Suspect]
     Active Substance: AMITRIPTYLINE
     Indication: Product used for unknown indication
     Route: 065
  5. TRAMADOL HYDROCHLORIDE [Suspect]
     Active Substance: TRAMADOL HYDROCHLORIDE
     Indication: Product used for unknown indication
     Route: 065
  6. BOTOX [Suspect]
     Active Substance: ONABOTULINUMTOXINA
     Indication: Product used for unknown indication
     Route: 030
  7. BOTULINUM TOXIN TYPE A [Suspect]
     Active Substance: BOTULINUM TOXIN TYPE A
     Indication: Product used for unknown indication
     Route: 030
  8. BOTULINUM TOXIN TYPE A [Suspect]
     Active Substance: BOTULINUM TOXIN TYPE A
     Route: 030
  9. CELECOXIB [Suspect]
     Active Substance: CELECOXIB
     Indication: Product used for unknown indication
     Route: 030
  10. CODEINE [Suspect]
     Active Substance: CODEINE
     Indication: Migraine
     Route: 065
  11. DULOXETINE [Suspect]
     Active Substance: DULOXETINE
     Indication: Migraine
     Route: 065
  12. DEMEROL [Suspect]
     Active Substance: MEPERIDINE HYDROCHLORIDE
     Indication: Product used for unknown indication
     Route: 065
  13. DIHYDROERGOTAMINE MESYLATE [Suspect]
     Active Substance: DIHYDROERGOTAMINE MESYLATE
     Indication: Migraine
     Route: 065
  14. ESOMEPRAZOLE [Suspect]
     Active Substance: ESOMEPRAZOLE
     Indication: Product used for unknown indication
     Route: 048
  15. ESOMEPRAZOLE [Suspect]
     Active Substance: ESOMEPRAZOLE
     Route: 048
  16. ENDOCET [Suspect]
     Active Substance: ACETAMINOPHEN\OXYCODONE HYDROCHLORIDE
     Indication: Migraine
     Route: 065
  17. ESOMEPRAZOLE MAGNESIUM\NAPROXEN [Suspect]
     Active Substance: ESOMEPRAZOLE MAGNESIUM\NAPROXEN
     Indication: Product used for unknown indication
     Route: 065
  18. ESOMEPRAZOLE MAGNESIUM\NAPROXEN [Suspect]
     Active Substance: ESOMEPRAZOLE MAGNESIUM\NAPROXEN
     Route: 065
  19. GABAPENTIN [Suspect]
     Active Substance: GABAPENTIN
     Indication: Product used for unknown indication
     Route: 065
  20. HYDROMORPHONE [Suspect]
     Active Substance: HYDROMORPHONE
     Indication: Migraine
     Route: 065
  21. IBUPROFEN [Suspect]
     Active Substance: IBUPROFEN
     Indication: Product used for unknown indication
     Route: 065
  22. KETAMINE HYDROCHLORIDE [Suspect]
     Active Substance: KETAMINE HYDROCHLORIDE
     Indication: Migraine
     Route: 065
  23. MORPHINE [Suspect]
     Active Substance: MORPHINE
     Indication: Migraine
     Route: 065
  24. MAXALT [Suspect]
     Active Substance: RIZATRIPTAN BENZOATE
     Indication: Product used for unknown indication
     Route: 065
  25. NORTRIPTYLINE HYDROCHLORIDE [Suspect]
     Active Substance: NORTRIPTYLINE HYDROCHLORIDE
     Indication: Product used for unknown indication
     Route: 065
  26. ONDANSETRON [Suspect]
     Active Substance: ONDANSETRON
     Indication: Migraine
     Route: 065
  27. PROPRANOLOL [Suspect]
     Active Substance: PROPRANOLOL HYDROCHLORIDE
     Indication: Migraine
     Route: 065
  28. ACETAMINOPHEN\OXYCODONE HYDROCHLORIDE [Suspect]
     Active Substance: ACETAMINOPHEN\OXYCODONE HYDROCHLORIDE
     Indication: Product used for unknown indication
     Route: 065
  29. VENLAFAXINE HYDROCHLORIDE [Suspect]
     Active Substance: VENLAFAXINE HYDROCHLORIDE
     Indication: Migraine
     Route: 065
  30. TENORETIC [Suspect]
     Active Substance: ATENOLOL\CHLORTHALIDONE
     Indication: Product used for unknown indication
     Route: 065
  31. TOPAMAX [Suspect]
     Active Substance: TOPIRAMATE
     Indication: Migraine
     Route: 065
  32. TORADOL [Suspect]
     Active Substance: KETOROLAC TROMETHAMINE
     Indication: Migraine
     Route: 065
  33. ACETAMINOPHEN\TRAMADOL [Suspect]
     Active Substance: ACETAMINOPHEN\TRAMADOL
     Indication: Migraine
     Route: 065
  34. TRIAMCINOLONE [Suspect]
     Active Substance: TRIAMCINOLONE
     Indication: Migraine
     Route: 065
  35. TYLENOL [Suspect]
     Active Substance: ACETAMINOPHEN
     Indication: Product used for unknown indication
     Route: 048
  36. VOLTAREN [Suspect]
     Active Substance: DICLOFENAC SODIUM
     Indication: Migraine
     Route: 065
  37. VOLTAREN [Suspect]
     Active Substance: DICLOFENAC SODIUM
     Route: 065
  38. ZOFRAN [Suspect]
     Active Substance: ONDANSETRON HYDROCHLORIDE
     Indication: Migraine
     Route: 065

REACTIONS (6)
  - Sedation [Unknown]
  - Hyperhidrosis [Unknown]
  - Nightmare [Unknown]
  - Off label use [Unknown]
  - Product use in unapproved indication [Unknown]
  - Drug ineffective [Unknown]
